FAERS Safety Report 4313118-9 (Version None)
Quarter: 2004Q1

REPORT INFORMATION
  Report Type: 
  Country: None (occurrence: None)
  Receive Date: 20040305
  Receipt Date: 20040305
  Transmission Date: 20041129
  Serious: Yes (Life-Threatening)
  Sender: FDA-Public Use
  Company Number: None

PATIENT
  Age: 51 Year
  Sex: Female

DRUGS (1)
  1. REMICADE [Suspect]
     Indication: FISTULA
     Dosage: 250 MG 0-2-6 WKS
     Dates: start: 20040119, end: 20040204

REACTIONS (4)
  - CHEST DISCOMFORT [None]
  - FEELING COLD [None]
  - FLUSHING [None]
  - TREMOR [None]
